FAERS Safety Report 10199132 (Version 1)
Quarter: 2014Q2

REPORT INFORMATION
  Report Type: Spontaneous
  Country: US (occurrence: US)
  Receive Date: 20140527
  Receipt Date: 20140527
  Transmission Date: 20141212
  Serious: No
  Sender: FDA-Public Use
  Company Number: US-NOVEN-13US008342

PATIENT
  Age: 12 Year
  Sex: Female

DRUGS (4)
  1. DAYTRANA [Suspect]
     Indication: ATTENTION DEFICIT/HYPERACTIVITY DISORDER
     Dosage: 20 MG, DAILY
     Route: 062
     Dates: start: 201308
  2. LAMICTAL [Concomitant]
     Indication: MOOD SWINGS
     Dosage: UNK
     Route: 048
  3. INTUNIV [Concomitant]
     Indication: PRODUCT USED FOR UNKNOWN INDICATION
     Dosage: UNK
     Route: 048
  4. TRAZODONE [Concomitant]
     Indication: INSOMNIA
     Dosage: UNK
     Route: 048

REACTIONS (3)
  - Application site erythema [Not Recovered/Not Resolved]
  - Application site pruritus [Not Recovered/Not Resolved]
  - Product quality issue [Not Recovered/Not Resolved]
